FAERS Safety Report 15461613 (Version 2)
Quarter: 2018Q4

REPORT INFORMATION
  Report Type: Spontaneous
  Country: BR (occurrence: BR)
  Receive Date: 20181003
  Receipt Date: 20181003
  Transmission Date: 20190204
  Serious: Yes (Hospitalization, Other)
  Sender: FDA-Public Use
  Company Number: PHHY2018BR113306

PATIENT
  Age: 68 Year
  Sex: Male
  Weight: 68 kg

DRUGS (6)
  1. COSENTYX [Suspect]
     Active Substance: SECUKINUMAB
     Indication: PSORIASIS
     Dosage: 300 MG, (MAINTAINING DOSE)
     Route: 065
     Dates: start: 201710
  2. CICLOSPORIN [Suspect]
     Active Substance: CYCLOSPORINE
     Indication: PUSTULAR PSORIASIS
     Dosage: UNK
     Route: 065
     Dates: start: 201505, end: 201605
  3. CICLOSPORIN [Suspect]
     Active Substance: CYCLOSPORINE
     Dosage: UNK
     Route: 065
     Dates: start: 201705, end: 201709
  4. CICLOSPORIN [Suspect]
     Active Substance: CYCLOSPORINE
     Dosage: 300 MG, UNK
     Route: 065
     Dates: start: 201606, end: 201609
  5. ISONIAZID. [Suspect]
     Active Substance: ISONIAZID
     Indication: LATENT TUBERCULOSIS
     Dosage: 300 MG, QD
     Route: 065
  6. COSENTYX [Suspect]
     Active Substance: SECUKINUMAB
     Indication: PSORIATIC ARTHROPATHY
     Dosage: 300 MG, AT WEEKS 0,1,2,3 AND 4
     Route: 065
     Dates: start: 2016

REACTIONS (15)
  - Abdominal distension [Unknown]
  - Ocular hyperaemia [Unknown]
  - Synovitis [Unknown]
  - Enthesopathy [Unknown]
  - Latent tuberculosis [Recovered/Resolved]
  - Psoriasis [Recovering/Resolving]
  - Abdominal pain [Unknown]
  - Drug eruption [Unknown]
  - Abdominal hernia obstructive [Unknown]
  - Colon adenoma [Unknown]
  - Cataract [Unknown]
  - Iris adhesions [Unknown]
  - Haemoglobin decreased [Unknown]
  - Vomiting [Unknown]
  - Iridocyclitis [Unknown]

NARRATIVE: CASE EVENT DATE: 201610
